FAERS Safety Report 5773337-1 (Version None)
Quarter: 2008Q2

REPORT INFORMATION
  Report Type: 
  Country: None (occurrence: None)
  Receive Date: 20080616
  Receipt Date: 20080609
  Transmission Date: 20081010
  Serious: Yes (Death)
  Sender: FDA-Public Use
  Company Number: US-BAYER-200820084GPV

PATIENT
  Age: 62 Year
  Sex: Male

DRUGS (10)
  1. ALEMTUZUMAB [Suspect]
     Indication: ACUTE GRAFT VERSUS HOST DISEASE
  2. BASLIXIMAB [Suspect]
     Indication: IMMUNOSUPPRESSION
     Route: 065
  3. TACROLIMUS [Suspect]
     Indication: IMMUNOSUPPRESSION
     Route: 065
  4. TACROLIMUS [Suspect]
     Route: 065
  5. SIROLIMUS [Suspect]
     Indication: IMMUNOSUPPRESSION
     Route: 065
  6. PREDNISOLONE [Suspect]
     Indication: IMMUNOSUPPRESSION
     Route: 065
  7. BOLUSED STEROIDS [Suspect]
     Indication: ACUTE GRAFT VERSUS HOST DISEASE
     Route: 042
  8. CYCLOPHOSPHAMIDE [Suspect]
     Indication: ACUTE GRAFT VERSUS HOST DISEASE
     Route: 065
  9. ANTIBIOTICS [Concomitant]
     Indication: INFECTION PROPHYLAXIS
  10. VORICONAZOLE [Concomitant]
     Indication: ANTIFUNGAL PROPHYLAXIS

REACTIONS (5)
  - ACUTE GRAFT VERSUS HOST DISEASE [None]
  - FUNGAL INFECTION [None]
  - FUNGAL SEPSIS [None]
  - MULTI-ORGAN FAILURE [None]
  - ZYGOMYCOSIS [None]
